FAERS Safety Report 8339275-5 (Version None)
Quarter: 2012Q2

REPORT INFORMATION
  Report Type: 
  Country: None (occurrence: None)
  Receive Date: 20120507
  Receipt Date: 20120426
  Transmission Date: 20120825
  Serious: Yes (Other)
  Sender: FDA-Public Use
  Company Number: KR-PERRIGO-12KR003700

PATIENT
  Age: 37 Year
  Sex: Female

DRUGS (1)
  1. RANITIDINE HYDROCHLORIDE [Suspect]
     Indication: PRODUCT USED FOR UNKNOWN INDICATION
     Dosage: UNK, UNK
     Route: 048

REACTIONS (8)
  - VOMITING [None]
  - ANAPHYLACTIC REACTION [None]
  - URTICARIA [None]
  - NAUSEA [None]
  - HYPOTENSION [None]
  - ANGIOEDEMA [None]
  - DYSPNOEA [None]
  - ABDOMINAL PAIN [None]
